FAERS Safety Report 4813706-7 (Version None)
Quarter: 2005Q4

REPORT INFORMATION
  Report Type: 
  Country: None (occurrence: None)
  Receive Date: 20051028
  Receipt Date: 20050712
  Transmission Date: 20060501
  Serious: No
  Sender: FDA-Public Use
  Company Number: US-GLAXOSMITHKLINE-A0565942A

PATIENT
  Age: 51 Year
  Sex: Female

DRUGS (8)
  1. IMITREX [Suspect]
     Indication: MIGRAINE
     Dosage: 20MG AS REQUIRED
     Route: 045
  2. IMITREX [Concomitant]
  3. TRAZODONE HCL [Concomitant]
  4. TOPROL-XL [Concomitant]
  5. ZANAFLEX [Concomitant]
  6. LEXAPRO [Concomitant]
  7. CORGARD [Concomitant]
  8. VALIUM [Concomitant]

REACTIONS (1)
  - DRUG INEFFECTIVE [None]
